FAERS Safety Report 23710550 (Version 1)
Quarter: 2024Q2

REPORT INFORMATION
  Report Type: Spontaneous
  Country: GB (occurrence: GB)
  Receive Date: 20240405
  Receipt Date: 20240405
  Transmission Date: 20240716
  Serious: Yes (Other)
  Sender: FDA-Public Use
  Company Number: GB-MHRA-MED-202403200856577750-GYMCH

PATIENT
  Sex: Female

DRUGS (1)
  1. CLARITHROMYCIN [Suspect]
     Active Substance: CLARITHROMYCIN
     Indication: Adverse drug reaction
     Dosage: 500 MILLIGRAM, TWO TIMES A DAY
     Route: 065
     Dates: start: 20240313, end: 20240317

REACTIONS (2)
  - Dyspepsia [Recovering/Resolving]
  - Chromaturia [Recovered/Resolved]

NARRATIVE: CASE EVENT DATE: 20240314
